FAERS Safety Report 9668473 (Version 1)
Quarter: 2013Q4

REPORT INFORMATION
  Report Type: Report from Study
  Country: AR (occurrence: AR)
  Receive Date: 20131105
  Receipt Date: 20131105
  Transmission Date: 20140711
  Serious: Yes (Other)
  Sender: FDA-Public Use
  Company Number: AR-ROCHE-1296314

PATIENT
  Age: 78 Year
  Sex: Female

DRUGS (2)
  1. LUCENTIS [Suspect]
     Indication: MACULOPATHY
     Route: 050
     Dates: start: 201112
  2. LUCENTIS [Suspect]
     Indication: THROMBOSIS

REACTIONS (4)
  - Maculopathy [Not Recovered/Not Resolved]
  - Condition aggravated [Not Recovered/Not Resolved]
  - Drug ineffective [Unknown]
  - Cataract [Not Recovered/Not Resolved]
